FAERS Safety Report 9454779 (Version 2)
Quarter: 2013Q3

REPORT INFORMATION
  Report Type: Spontaneous
  Country: JP (occurrence: JP)
  Receive Date: 20130812
  Receipt Date: 20130903
  Transmission Date: 20140515
  Serious: Yes (Hospitalization)
  Sender: FDA-Public Use
  Company Number: JP-B.I. PHARMACEUTICALS,INC./RIDGEFIELD-2013-BI-19495NB

PATIENT
  Age: 81 Year
  Sex: Male

DRUGS (14)
  1. MIRAPEX [Suspect]
     Indication: PARKINSON^S DISEASE
     Dosage: 3 MG
     Route: 048
     Dates: start: 201108
  2. MIRAPEX [Suspect]
     Dosage: 1.5 MG
     Route: 048
     Dates: start: 20130527, end: 20130621
  3. MIRAPEX [Suspect]
     Dosage: 2.25 MG
     Route: 048
     Dates: start: 20130622
  4. MIRAPEX [Suspect]
     Dosage: 3 MG
     Route: 048
     Dates: start: 201308
  5. TRERIEF [Concomitant]
     Indication: PARKINSON^S DISEASE
     Dosage: 25 MG
     Route: 048
  6. MENESIT [Concomitant]
     Indication: PARKINSON^S DISEASE
     Dosage: 800 MG
     Route: 048
     Dates: start: 200306
  7. COMTAN [Concomitant]
     Indication: PARKINSON^S DISEASE
     Dosage: 100 MG
     Route: 048
     Dates: start: 201106
  8. NATRIX [Concomitant]
     Indication: HYPERTENSION
     Dosage: 1 MG
     Route: 048
  9. ACINON [Concomitant]
     Indication: ABDOMINAL DISCOMFORT
     Dosage: 300 NG
     Route: 048
  10. MUCOSTA [Concomitant]
     Indication: ABDOMINAL DISCOMFORT
     Dosage: 5 MG
     Route: 048
  11. MAGMITT [Concomitant]
     Indication: CONSTIPATION
     Dosage: 330 MG
     Route: 048
  12. DOMPERIDONE [Concomitant]
     Indication: ABDOMINAL DISCOMFORT
     Dosage: 30 MG
     Route: 048
  13. PURSENNID [Concomitant]
     Indication: CONSTIPATION
     Dosage: 12 MG
     Route: 048
  14. DAIOKANZOTO [Concomitant]
     Indication: CONSTIPATION
     Route: 048

REACTIONS (3)
  - Parkinsonism [Unknown]
  - Libido increased [Not Recovered/Not Resolved]
  - Drug ineffective [Unknown]
